FAERS Safety Report 12184101 (Version 1)
Quarter: 2016Q1

REPORT INFORMATION
  Report Type: Report from Study
  Country: DE (occurrence: DE)
  Receive Date: 20160316
  Receipt Date: 20160316
  Transmission Date: 20160526
  Serious: Yes (Hospitalization)
  Sender: FDA-Public Use
  Company Number: DE-BIOGEN-2016BI00167470

PATIENT
  Age: 43 Year
  Sex: Female

DRUGS (4)
  1. PANTOPRAZOLE 20 [Concomitant]
     Indication: GASTRITIS
     Route: 065
     Dates: start: 20150817
  2. THYRONAJOD 50 [Concomitant]
     Indication: HYPOTHYROIDISM
     Route: 065
     Dates: start: 20140101
  3. TYSABRI [Suspect]
     Active Substance: NATALIZUMAB
     Indication: MULTIPLE SCLEROSIS
     Route: 042
     Dates: start: 20090508
  4. VENLAFLAXINE 75 RET [Concomitant]
     Indication: DEPRESSION
     Route: 065
     Dates: start: 20130808

REACTIONS (1)
  - Adenomyosis [Recovered/Resolved]

NARRATIVE: CASE EVENT DATE: 20150901
